FAERS Safety Report 10678406 (Version 2)
Quarter: 2014Q4

REPORT INFORMATION
  Report Type: Spontaneous
  Country: FR (occurrence: FR)
  Receive Date: 20141229
  Receipt Date: 20141229
  Transmission Date: 20150529
  Serious: Yes (Other)
  Sender: FDA-Public Use
  Company Number: FR-UCBSA-2014019609

PATIENT
  Age: 49 Year
  Sex: Female
  Weight: 82 kg

DRUGS (3)
  1. CIMZIA [Suspect]
     Active Substance: CERTOLIZUMAB PEGOL
     Indication: RHEUMATOID ARTHRITIS
     Dosage: 400 MG, EV 2 WEEKS(QOW)
     Route: 058
     Dates: start: 201402, end: 2014
  2. SEROPLEX [Concomitant]
     Active Substance: ESCITALOPRAM OXALATE
     Indication: DEPRESSION
     Dosage: UNK
     Dates: end: 20140526
  3. CIMZIA [Suspect]
     Active Substance: CERTOLIZUMAB PEGOL
     Dosage: 200 MG, EV 2 WEEKS(QOW)
     Route: 058
     Dates: start: 2014, end: 201407

REACTIONS (1)
  - Hepatocellular injury [Recovered/Resolved]

NARRATIVE: CASE EVENT DATE: 201406
